FAERS Safety Report 14541335 (Version 1)
Quarter: 2018Q1

REPORT INFORMATION
  Report Type: Spontaneous
  Country: US (occurrence: US)
  Receive Date: 20180216
  Receipt Date: 20180216
  Transmission Date: 20180509
  Serious: Yes (Other)
  Sender: FDA-Public Use
  Company Number: US-OTSUKA-DJ20084262

PATIENT

DRUGS (1)
  1. ABILIFY [Suspect]
     Active Substance: ARIPIPRAZOLE
     Route: 065

REACTIONS (5)
  - Pancreatitis chronic [Unknown]
  - Anxiety [Unknown]
  - Neuroleptic malignant syndrome [Not Recovered/Not Resolved]
  - Anaphylactic reaction [Unknown]
  - Vascular injury [Unknown]
